FAERS Safety Report 18566373 (Version 3)
Quarter: 2021Q1

REPORT INFORMATION
  Report Type: Spontaneous
  Country: US (occurrence: US)
  Receive Date: 20201201
  Receipt Date: 20210216
  Transmission Date: 20210419
  Serious: Yes (Other)
  Sender: FDA-Public Use
  Company Number: US-ASTRAZENECA-2020SF55983

PATIENT
  Sex: Male
  Weight: 100 kg

DRUGS (18)
  1. LYNPARZA [Suspect]
     Active Substance: OLAPARIB
     Indication: PRODUCT USED FOR UNKNOWN INDICATION
     Route: 048
  2. XTANDI [Suspect]
     Active Substance: ENZALUTAMIDE
     Indication: PROSTATE CANCER
     Route: 048
     Dates: start: 20200714, end: 20200830
  3. FISH OIL [Concomitant]
     Active Substance: FISH OIL
  4. PREDNISONE. [Concomitant]
     Active Substance: PREDNISONE
  5. CIPROFLOXACIN HCL [Concomitant]
     Active Substance: CIPROFLOXACIN HYDROCHLORIDE
     Dosage: 0.3% UNKNOWN
  6. NIFEDIPINE. [Concomitant]
     Active Substance: NIFEDIPINE
  7. KETOROLAC TROMETHAMINE. [Concomitant]
     Active Substance: KETOROLAC TROMETHAMINE
     Dosage: 100.0% UNKNOWN
  8. ASPIRIN. [Concomitant]
     Active Substance: ASPIRIN
  9. EUTHYROX [Concomitant]
     Active Substance: LEVOTHYROXINE SODIUM
  10. GABAPENTIN. [Concomitant]
     Active Substance: GABAPENTIN
  11. LATANOPROST. [Concomitant]
     Active Substance: LATANOPROST
  12. ALPHA LIPOIC ACID [Concomitant]
     Active Substance: .ALPHA.-LIPOIC ACID
  13. IBUPROFEN. [Concomitant]
     Active Substance: IBUPROFEN
  14. VITAMIN D3 [Concomitant]
     Active Substance: CHOLECALCIFEROL
  15. VITAMIN C [Concomitant]
     Active Substance: ASCORBIC ACID
  16. DORZOLAMIDE [Concomitant]
     Active Substance: DORZOLAMIDE
  17. EZETIMIBE. [Concomitant]
     Active Substance: EZETIMIBE
  18. PREDNISOLONE. [Concomitant]
     Active Substance: PREDNISOLONE

REACTIONS (5)
  - Arthritis [Unknown]
  - Fatigue [Unknown]
  - Glaucoma [Unknown]
  - Prostatic specific antigen increased [Unknown]
  - Cataract [Unknown]
